FAERS Safety Report 26070080 (Version 1)
Quarter: 2025Q4

REPORT INFORMATION
  Report Type: Spontaneous
  Country: US (occurrence: None)
  Receive Date: 20251119
  Receipt Date: 20251119
  Transmission Date: 20260117
  Serious: No
  Sender: FDA-CTU
  Company Number: None

PATIENT
  Age: 75 Year
  Sex: Male

DRUGS (1)
  1. TADALAFIL [Suspect]
     Active Substance: TADALAFIL
     Dosage: 25 MG PRN OAL ?
     Route: 048

REACTIONS (2)
  - Dyspepsia [None]
  - Therapy cessation [None]

NARRATIVE: CASE EVENT DATE: 20251106
